FAERS Safety Report 19797968 (Version 1)
Quarter: 2021Q3

REPORT INFORMATION
  Report Type: Spontaneous
  Country: IT (occurrence: IT)
  Receive Date: 20210907
  Receipt Date: 20210907
  Transmission Date: 20211014
  Serious: Yes (Other)
  Sender: FDA-Public Use
  Company Number: IT-ACCORD-237571

PATIENT
  Age: 60 Year
  Sex: Male
  Weight: 77 kg

DRUGS (4)
  1. OXALIPLATIN ACCORD [Concomitant]
     Active Substance: OXALIPLATIN
     Indication: PANCREATIC CARCINOMA
     Route: 042
     Dates: start: 20210708, end: 20210708
  2. SODIUM LEVOFOLINATE MEDAC [Concomitant]
     Active Substance: LEVOLEUCOVORIN DISODIUM
     Indication: PANCREATIC CARCINOMA
     Route: 042
     Dates: start: 20210708, end: 20210708
  3. FLUOROURACIL AHCL [Suspect]
     Active Substance: FLUOROURACIL
     Indication: PANCREATIC CARCINOMA
     Route: 042
     Dates: start: 20210708, end: 20210709
  4. IRINOTECAN KABI [Concomitant]
     Active Substance: IRINOTECAN
     Indication: PANCREATIC CARCINOMA
     Route: 042
     Dates: start: 20210708, end: 20210708

REACTIONS (3)
  - Device dislocation [Recovering/Resolving]
  - Administration site erythema [Recovering/Resolving]
  - Medical device site extravasation [Recovering/Resolving]

NARRATIVE: CASE EVENT DATE: 20210709
